FAERS Safety Report 23252892 (Version 2)
Quarter: 2023Q4

REPORT INFORMATION
  Report Type: Spontaneous
  Country: US (occurrence: US)
  Receive Date: 20231201
  Receipt Date: 20231201
  Transmission Date: 20240110
  Serious: Yes (Hospitalization)
  Sender: FDA-Public Use
  Company Number: US-ORG100016242-2023000218

PATIENT
  Age: 71 Year
  Sex: Male

DRUGS (1)
  1. ZILRETTA [Suspect]
     Active Substance: TRIAMCINOLONE ACETONIDE
     Indication: Product used for unknown indication
     Dosage: NOT PROVIDED
     Route: 065
     Dates: start: 202307, end: 202307

REACTIONS (3)
  - Osteoarthritis [Recovering/Resolving]
  - Hyperglycaemia [Unknown]
  - Joint effusion [Unknown]

NARRATIVE: CASE EVENT DATE: 20230718
